FAERS Safety Report 6723966-3 (Version None)
Quarter: 2010Q2

REPORT INFORMATION
  Report Type: 
  Country: None (occurrence: None)
  Receive Date: 20100513
  Receipt Date: 20100506
  Transmission Date: 20101027
  Serious: Yes (Hospitalization)
  Sender: FDA-Public Use
  Company Number: PHHO2009JP15381

PATIENT
  Sex: Male
  Weight: 67 kg

DRUGS (17)
  1. BLINDED ALISKIREN ALI+TAB+CF [Suspect]
     Dosage: CODE NOT BROKEN
     Route: 048
     Dates: start: 20100304
  2. BLINDED ENALAPRIL COMP-ENA+ [Suspect]
     Dosage: CODE NOT BROKEN
     Route: 048
     Dates: start: 20100304
  3. BLINDED NO TREATMENT RECEIVED NOMED [Suspect]
     Dosage: CODE NOT BROKEN
     Route: 048
     Dates: start: 20100304
  4. COMPARATOR ENALAPRIL [Suspect]
     Indication: CARDIAC FAILURE
     Dosage: UNK
     Route: 048
     Dates: start: 20100122
  5. ALISKIREN [Suspect]
     Indication: CARDIAC FAILURE
     Dosage: UNK
     Dates: start: 20100304
  6. RENIVACE [Concomitant]
  7. MAINTATE [Concomitant]
  8. DIGOXIN [Concomitant]
  9. KALGUT [Concomitant]
  10. ALOSITOL [Concomitant]
  11. NITROPEN [Concomitant]
  12. NITROGLYCERIN [Concomitant]
  13. BUFFERIN [Concomitant]
  14. PLAVIX [Concomitant]
  15. TAKEPRON [Concomitant]
  16. MEVALOTIN [Concomitant]
  17. HARNAL [Concomitant]

REACTIONS (7)
  - BRAIN NATRIURETIC PEPTIDE INCREASED [None]
  - CARDIAC FAILURE [None]
  - DYSPNOEA [None]
  - INSOMNIA [None]
  - OEDEMA PERIPHERAL [None]
  - PLEURAL EFFUSION [None]
  - RESTLESSNESS [None]
